FAERS Safety Report 6157988-0 (Version None)
Quarter: 2009Q2

REPORT INFORMATION
  Report Type: 
  Country: None (occurrence: None)
  Receive Date: 20090417
  Receipt Date: 20090407
  Transmission Date: 20091009
  Serious: Yes (Death)
  Sender: FDA-Public Use
  Company Number: US-PFIZER INC-2009186524

PATIENT
  Sex: Female

DRUGS (2)
  1. GEODON [Suspect]
     Dosage: 40 MG, UNK
     Dates: start: 20080101, end: 20080101
  2. ALL OTHER THERAPEUTIC PRODUCTS [Interacting]
     Indication: CONVULSION
     Dosage: UNK
     Dates: end: 20080101

REACTIONS (2)
  - DRUG INTERACTION [None]
  - INCORRECT DOSE ADMINISTERED [None]
